FAERS Safety Report 4378039-4 (Version None)
Quarter: 2004Q2

REPORT INFORMATION
  Report Type: 
  Country: None (occurrence: None)
  Receive Date: 20040608
  Receipt Date: 20040527
  Transmission Date: 20050107
  Serious: Yes (Hospitalization)
  Sender: FDA-Public Use
  Company Number: 04P-167-0262374-00

PATIENT
  Sex: Male
  Weight: 56 kg

DRUGS (7)
  1. HUMIRA 40 MG/ 0.8 ML PRE-FILLED SYRINGE (HUMIRA) (ADALIMUMAB) (ADALIMU [Suspect]
     Indication: RHEUMATOID ARTHRITIS
     Dosage: 40M MG, SUBCUTANEOUS
     Route: 058
     Dates: start: 20030623
  2. METHOTREXATE [Concomitant]
  3. PREDNISOLONE [Concomitant]
  4. FOLIC ACID [Concomitant]
  5. DOSULEPIN [Concomitant]
  6. ACETAMINOPHEN W/ CODEINE [Concomitant]
  7. ARTHROTEC [Concomitant]

REACTIONS (2)
  - DISLOCATION OF VERTEBRA [None]
  - HEADACHE [None]
